FAERS Safety Report 9601819 (Version 2)
Quarter: 2014Q1

REPORT INFORMATION
  Report Type: Spontaneous
  Country: GB (occurrence: GB)
  Receive Date: 20131007
  Receipt Date: 20140203
  Transmission Date: 20141002
  Serious: Yes (Disabling, Other)
  Sender: FDA-Public Use
  Company Number: GB-UCBSA-099088

PATIENT
  Age: 30 Year
  Sex: Male

DRUGS (7)
  1. VIMPAT [Suspect]
     Indication: EPILEPSY
     Route: 048
     Dates: end: 20130908
  2. VIMPAT [Suspect]
     Indication: EPILEPSY
     Route: 048
     Dates: start: 20130909, end: 201309
  3. VIMPAT [Suspect]
     Indication: EPILEPSY
     Route: 048
     Dates: start: 201309, end: 2013
  4. VIMPAT [Suspect]
     Indication: EPILEPSY
     Route: 048
     Dates: start: 2013, end: 2013
  5. SODIUM VALPROATE [Concomitant]
     Indication: EPILEPSY
  6. FLUOXETINE [Concomitant]
     Dosage: DOSE: 40 MG
     Dates: start: 20130907, end: 20130911
  7. FLUOXETINE [Concomitant]
     Dosage: DOSE: 10 MG
     Dates: start: 20130911, end: 201309

REACTIONS (3)
  - Myoclonus [Not Recovered/Not Resolved]
  - Epilepsy [Not Recovered/Not Resolved]
  - Drug ineffective [Recovered/Resolved]
